FAERS Safety Report 20994245 (Version 2)
Quarter: 2023Q4

REPORT INFORMATION
  Report Type: Spontaneous
  Country: US (occurrence: US)
  Receive Date: 20220622
  Receipt Date: 20231213
  Transmission Date: 20240110
  Serious: Yes (Other)
  Sender: FDA-Public Use
  Company Number: US-MYLANLABS-2022M1046467

PATIENT
  Age: 58 Year
  Sex: Male

DRUGS (3)
  1. VALSARTAN [Suspect]
     Active Substance: VALSARTAN
     Indication: Hypertension
     Dosage: 320 MILLIGRAM
     Route: 065
     Dates: start: 20150219, end: 20160217
  2. VALSARTAN [Suspect]
     Active Substance: VALSARTAN
     Dosage: UNK, (160/25 MILLIGRAM)
     Route: 065
     Dates: start: 20160715, end: 20180404
  3. VALSARTAN [Suspect]
     Active Substance: VALSARTAN
     Dosage: UNK, (160/25 MILLIGRAM)
     Route: 065
     Dates: start: 20180104, end: 20180204

REACTIONS (1)
  - Prostate cancer [Unknown]

NARRATIVE: CASE EVENT DATE: 20210713
